FAERS Safety Report 9414386 (Version 1)
Quarter: 2013Q3

REPORT INFORMATION
  Report Type: Spontaneous
  Country: US (occurrence: US)
  Receive Date: 20130723
  Receipt Date: 20130723
  Transmission Date: 20140515
  Serious: No
  Sender: FDA-Public Use
  Company Number: US-009507513-1307USA009813

PATIENT
  Sex: 0

DRUGS (1)
  1. NEXPLANON [Suspect]
     Route: 059

REACTIONS (3)
  - Complication of device insertion [Unknown]
  - Device difficult to use [Unknown]
  - Product quality issue [Unknown]
